FAERS Safety Report 6829598-0 (Version None)
Quarter: 2010Q3

REPORT INFORMATION
  Report Type: 
  Country: None (occurrence: None)
  Receive Date: 20100709
  Receipt Date: 20070501
  Transmission Date: 20110219
  Serious: No
  Sender: FDA-Public Use
  Company Number: US-PFIZER INC-2007018238

PATIENT
  Sex: Female
  Weight: 76.2 kg

DRUGS (5)
  1. CHANTIX [Suspect]
     Indication: SMOKING CESSATION THERAPY
     Route: 048
     Dates: start: 20070302
  2. ALBUTEROL [Concomitant]
  3. VITAMINS [Concomitant]
  4. ESTROVEN [Concomitant]
  5. FISH OIL [Concomitant]

REACTIONS (5)
  - ASTHENIA [None]
  - DISTURBANCE IN ATTENTION [None]
  - FATIGUE [None]
  - SPEECH DISORDER [None]
  - TREMOR [None]
